FAERS Safety Report 20815289 (Version 4)
Quarter: 2022Q2

REPORT INFORMATION
  Report Type: Spontaneous
  Country: PL (occurrence: PL)
  Receive Date: 20220511
  Receipt Date: 20220622
  Transmission Date: 20220720
  Serious: Yes (Hospitalization, Other)
  Sender: FDA-Public Use
  Company Number: PL-MYLANLABS-2022M1027022

PATIENT
  Age: 43 Year
  Sex: Female

DRUGS (26)
  1. OXCARBAZEPINE [Suspect]
     Active Substance: OXCARBAZEPINE
     Indication: Epilepsy
     Dosage: 1800 MILLIGRAM, QD,1800 MG, DAILY
  2. OXCARBAZEPINE [Suspect]
     Active Substance: OXCARBAZEPINE
     Indication: Juvenile myoclonic epilepsy
     Dosage: 1500 MILLIGRAM, QD,1500 MG, DAILY
  3. OXCARBAZEPINE [Suspect]
     Active Substance: OXCARBAZEPINE
     Dosage: UNK
  4. OXCARBAZEPINE [Suspect]
     Active Substance: OXCARBAZEPINE
     Dosage: 600 MILLIGRAM, QD,600 MG, DAILY
  5. TOPIRAMATE [Suspect]
     Active Substance: TOPIRAMATE
     Indication: Epilepsy
     Dosage: 800 MILLIGRAM, QD,800 MG, DAILY
  6. TOPIRAMATE [Suspect]
     Active Substance: TOPIRAMATE
     Indication: Juvenile myoclonic epilepsy
     Dosage: 600 MILLIGRAM, QD,600 MG, DAILY
  7. TOPIRAMATE [Suspect]
     Active Substance: TOPIRAMATE
     Dosage: 200 MILLIGRAM, QD,200 MG, DAILY
  8. TOPIRAMATE [Suspect]
     Active Substance: TOPIRAMATE
     Dosage: UNK
  9. GABAPENTIN [Suspect]
     Active Substance: GABAPENTIN
     Indication: Epilepsy
     Dosage: UNK
  10. LEVETIRACETAM [Suspect]
     Active Substance: LEVETIRACETAM
     Indication: Epilepsy
     Dosage: UNK
  11. PHENYTOIN SODIUM [Suspect]
     Active Substance: PHENYTOIN SODIUM
     Indication: Epilepsy
     Dosage: UNK
  12. CARBAMAZEPINE [Suspect]
     Active Substance: CARBAMAZEPINE
     Indication: Epilepsy
     Dosage: UNK
  13. CARBAMAZEPINE [Suspect]
     Active Substance: CARBAMAZEPINE
     Indication: Juvenile myoclonic epilepsy
  14. LAMOTRIGINE [Concomitant]
     Active Substance: LAMOTRIGINE
     Indication: Juvenile myoclonic epilepsy
     Dosage: 200 MILLIGRAM, QD
  15. LAMOTRIGINE [Concomitant]
     Active Substance: LAMOTRIGINE
     Indication: Epilepsy
     Dosage: UNK
  16. TOPIRAMATE [Concomitant]
     Active Substance: TOPIRAMATE
     Indication: Epilepsy
     Dosage: UNK DECREASING THE DOSE OF TOPIRAMATE TO 200 MG DAILY
  17. TOPIRAMATE [Concomitant]
     Active Substance: TOPIRAMATE
     Dosage: 600 MILLIGRAM, QD
  18. TOPIRAMATE [Concomitant]
     Active Substance: TOPIRAMATE
     Dosage: 800 MILLIGRAM, QD
  19. OXCARBAZEPINE [Concomitant]
     Active Substance: OXCARBAZEPINE
     Indication: Epilepsy
     Dosage: 600 MILLIGRAM, QD
  20. OXCARBAZEPINE [Concomitant]
     Active Substance: OXCARBAZEPINE
     Dosage: 1500 MILLIGRAM, QD
  21. OXCARBAZEPINE [Concomitant]
     Active Substance: OXCARBAZEPINE
     Dosage: 800 MILLIGRAM, QD
  22. VALPROIC ACID [Concomitant]
     Active Substance: VALPROIC ACID
     Indication: Epilepsy
     Dosage: 1000 MILLIGRAM, QD,DAILY
  23. VALPROIC ACID [Concomitant]
     Active Substance: VALPROIC ACID
     Indication: Juvenile myoclonic epilepsy
     Dosage: 1500 MILLIGRAM, QD,DAILY
  24. VALPROIC ACID [Concomitant]
     Active Substance: VALPROIC ACID
     Dosage: UNK
  25. VALPROIC ACID [Concomitant]
     Active Substance: VALPROIC ACID
     Dosage: 2000 MILLIGRAM, QD,DAILY
  26. DIAZEPAM [Concomitant]
     Active Substance: DIAZEPAM
     Indication: Status epilepticus
     Dosage: UNK
     Route: 042

REACTIONS (9)
  - Status epilepticus [Recovered/Resolved]
  - Myoclonic epilepsy [Recovered/Resolved]
  - Petit mal epilepsy [Recovered/Resolved]
  - Drug ineffective [Unknown]
  - Mental impairment [Recovered/Resolved]
  - Memory impairment [Recovered/Resolved]
  - Disorientation [Recovered/Resolved]
  - Psychomotor retardation [Recovered/Resolved]
  - Therapeutic product effect incomplete [Unknown]
